FAERS Safety Report 9522152 (Version 3)
Quarter: 2013Q4

REPORT INFORMATION
  Report Type: Spontaneous
  Country: US (occurrence: None)
  Receive Date: 20130829
  Receipt Date: 20131211
  Transmission Date: 20140711
  Serious: Yes (Life-Threatening, Other)
  Sender: FDA-Public Use
  Company Number: 003-136

PATIENT
  Age: 42 Year
  Sex: Male

DRUGS (1)
  1. CROFAB [Suspect]
     Indication: SNAKE BITE
     Dosage: 106 VIALS TOTAL
     Dates: start: 20130330, end: 20130406

REACTIONS (9)
  - Blood glucose increased [None]
  - Blood creatine phosphokinase increased [None]
  - Disseminated intravascular coagulation [None]
  - Skin necrosis [None]
  - Pneumonia [None]
  - Tracheal oedema [None]
  - Respiratory failure [None]
  - Muscle necrosis [None]
  - Anaphylactic shock [None]
